FAERS Safety Report 4313321-8 (Version None)
Quarter: 2004Q1

REPORT INFORMATION
  Report Type: 
  Country: None (occurrence: None)
  Receive Date: 20040304
  Receipt Date: 20040224
  Transmission Date: 20041129
  Serious: Yes (Hospitalization, Other)
  Sender: FDA-Public Use
  Company Number: 2004012889

PATIENT
  Sex: Male

DRUGS (1)
  1. TIKOSYN [Suspect]
     Indication: ILL-DEFINED DISORDER
     Dates: end: 20040220

REACTIONS (1)
  - ARRHYTHMIA [None]
